FAERS Safety Report 7243860-1 (Version None)
Quarter: 2011Q1

REPORT INFORMATION
  Report Type: 
  Country: None (occurrence: None)
  Receive Date: 20110125
  Receipt Date: 20110118
  Transmission Date: 20110831
  Serious: Yes (Other)
  Sender: FDA-Public Use
  Company Number: A0888939A

PATIENT
  Age: 65 Year
  Sex: Female
  Weight: 52.3 kg

DRUGS (1)
  1. REQUIP [Suspect]
     Route: 048

REACTIONS (4)
  - ABASIA [None]
  - MOVEMENT DISORDER [None]
  - NEUROPATHY PERIPHERAL [None]
  - PARALYSIS [None]
